FAERS Safety Report 6525773-3 (Version None)
Quarter: 2010Q1

REPORT INFORMATION
  Report Type: 
  Country: None (occurrence: None)
  Receive Date: 20100104
  Receipt Date: 20090331
  Transmission Date: 20100710
  Serious: Yes (Other)
  Sender: FDA-Public Use
  Company Number: US-BAYER-200920303NA

PATIENT
  Age: 49 Year
  Sex: Male
  Weight: 76 kg

DRUGS (29)
  1. MAGNEVIST [Suspect]
     Indication: NUCLEAR MAGNETIC RESONANCE IMAGING
     Route: 042
     Dates: start: 19990624, end: 19990624
  2. MAGNEVIST [Suspect]
     Route: 042
     Dates: start: 20020828, end: 20020828
  3. MAGNEVIST [Suspect]
     Route: 042
     Dates: start: 20020903, end: 20020903
  4. MAGNEVIST [Suspect]
     Dates: start: 20020927, end: 20020927
  5. MAGNEVIST [Suspect]
     Dates: start: 20021230, end: 20021230
  6. OPTIMARK [Suspect]
     Indication: NUCLEAR MAGNETIC RESONANCE IMAGING
     Dosage: AS USED: 15 ML
     Dates: start: 20051017, end: 20051017
  7. UNSPECIFIED GBCA [Suspect]
     Indication: NUCLEAR MAGNETIC RESONANCE IMAGING THORACIC
     Dosage: TOTAL DAILY DOSE: 20 ML
     Route: 042
     Dates: start: 20041014, end: 20041014
  8. UNSPECIFIED GBCA [Suspect]
     Dosage: 1980'S
  9. PROZAC [Concomitant]
  10. PRILOSEC [Concomitant]
  11. PROSCAR [Concomitant]
  12. ALPRAZOLAM [Concomitant]
  13. OXYCODONE [Concomitant]
  14. DIAZEPAM [Concomitant]
  15. SERTRALINE HCL [Concomitant]
  16. TRAZEDONE [Concomitant]
  17. ZOLPIDEM TARTRATE [Concomitant]
  18. PROCHLORPERAZINE [Concomitant]
  19. FLUOXETINE [Concomitant]
  20. FUROSEMIDE [Concomitant]
  21. DEXAMETHASONE [Concomitant]
  22. LIPITOR [Concomitant]
  23. HYDROCHLOROTHIAZIDE [Concomitant]
  24. MEPERIDINE HCL [Concomitant]
  25. AZITHROMYCIN [Concomitant]
  26. CIPROFLOXACIN [Concomitant]
  27. KETOCONAZOLE [Concomitant]
  28. HYDROMORPHONE [Concomitant]
  29. VISIPAQUE [Concomitant]
     Indication: ARTERIOGRAM CORONARY
     Dates: start: 20061115, end: 20061115

REACTIONS (13)
  - ARTHRALGIA [None]
  - ASTHENIA [None]
  - DYSPNOEA [None]
  - EXERCISE TOLERANCE DECREASED [None]
  - FATIGUE [None]
  - GAIT DISTURBANCE [None]
  - JOINT RANGE OF MOTION DECREASED [None]
  - MUSCLE SPASMS [None]
  - MYALGIA [None]
  - NEPHROGENIC SYSTEMIC FIBROSIS [None]
  - PRURITUS [None]
  - SKIN HYPERTROPHY [None]
  - SKIN TIGHTNESS [None]
